FAERS Safety Report 5014756-0 (Version None)
Quarter: 2006Q2

REPORT INFORMATION
  Report Type: 
  Country: None (occurrence: None)
  Receive Date: 20060531
  Receipt Date: 20060522
  Transmission Date: 20061013
  Serious: Yes (Hospitalization)
  Sender: FDA-Public Use
  Company Number: US-BRISTOL-MYERS SQUIBB COMPANY-13385463

PATIENT
  Age: 81 Year
  Sex: Female
  Weight: 82 kg

DRUGS (10)
  1. COUMADIN [Suspect]
     Indication: ATRIAL FIBRILLATION
     Dates: start: 20060118
  2. PLAVIX [Suspect]
     Indication: CORONARY ARTERY SURGERY
  3. FUROSEMIDE [Concomitant]
  4. LEVOTHYROXINE SODIUM [Concomitant]
  5. CATAPRES [Concomitant]
     Route: 062
     Dates: start: 20050801
  6. CARTIA XT [Concomitant]
     Dates: start: 20050801
  7. METOPROLOL [Concomitant]
  8. ZYRTEC [Concomitant]
  9. LIPITOR [Concomitant]
  10. ASPIRIN [Concomitant]
     Dates: start: 20050801

REACTIONS (5)
  - CEREBROVASCULAR ACCIDENT [None]
  - CONTUSION [None]
  - EAR HAEMORRHAGE [None]
  - TRANSIENT ISCHAEMIC ATTACK [None]
  - URINARY TRACT INFECTION [None]
